FAERS Safety Report 8001065-0 (Version None)
Quarter: 2011Q4

REPORT INFORMATION
  Report Type: 
  Country: None (occurrence: None)
  Receive Date: 20111222
  Receipt Date: 20111217
  Transmission Date: 20120403
  Serious: No
  Sender: FDA-Public Use
  Company Number: US-BAYER-2011-121690

PATIENT
  Age: 63 Year
  Sex: Female

DRUGS (2)
  1. AVELOX [Suspect]
     Indication: BRONCHITIS
     Dosage: UNK
  2. AVELOX [Suspect]
     Indication: ASTHMA

REACTIONS (2)
  - DYSGEUSIA [None]
  - AGEUSIA [None]
